FAERS Safety Report 7847492-3 (Version None)
Quarter: 2011Q4

REPORT INFORMATION
  Report Type: 
  Country: None (occurrence: None)
  Receive Date: 20111025
  Receipt Date: 20111003
  Transmission Date: 20120403
  Serious: Yes (Life-Threatening)
  Sender: FDA-Public Use
  Company Number: US-ROCHE-1003057

PATIENT
  Sex: Male
  Weight: 78 kg

DRUGS (11)
  1. NOVOLOG [Concomitant]
  2. PACLITAXEL [Suspect]
     Indication: NON-SMALL CELL LUNG CANCER
     Route: 042
     Dates: start: 20110725, end: 20110913
  3. CARBOPLATIN [Suspect]
     Indication: NON-SMALL CELL LUNG CANCER
  4. LANTUS [Concomitant]
  5. AUGMENTIN [Concomitant]
  6. CREON [Concomitant]
  7. CARVEDILOL [Concomitant]
  8. LISINOPRIL [Concomitant]
  9. CETIRIZINE HCL [Concomitant]
  10. PANTOPRAZOLE [Concomitant]
  11. AVASTIN [Suspect]
     Indication: NON-SMALL CELL LUNG CANCER
     Route: 042
     Dates: start: 20110725, end: 20110913

REACTIONS (1)
  - SUICIDAL IDEATION [None]
